FAERS Safety Report 5753429-3 (Version None)
Quarter: 2008Q2

REPORT INFORMATION
  Report Type: 
  Country: None (occurrence: None)
  Receive Date: 20080530
  Receipt Date: 20080519
  Transmission Date: 20081010
  Serious: Yes (Hospitalization)
  Sender: FDA-Public Use
  Company Number: JP-NOVOPROD-275297

PATIENT
  Sex: Male
  Weight: 55 kg

DRUGS (4)
  1. NOVOLIN N [Suspect]
     Dosage: 10 IU, QD
     Route: 058
     Dates: start: 20071218, end: 20080118
  2. NOVORAPID CHU [Suspect]
     Indication: INSULIN-REQUIRING TYPE 2 DIABETES MELLITUS
     Dosage: 24 IU, QD
     Route: 058
     Dates: start: 20071218, end: 20080118
  3. HUMALOG N [Concomitant]
     Indication: TYPE 2 DIABETES MELLITUS
     Dosage: 6 IU, QD
     Dates: start: 20080123
  4. HUMALOG [Concomitant]
     Indication: TYPE 2 DIABETES MELLITUS
     Dosage: 20 IU, QD
     Dates: start: 20080123

REACTIONS (1)
  - HEPATIC FUNCTION ABNORMAL [None]
